FAERS Safety Report 7977801-6 (Version None)
Quarter: 2011Q4

REPORT INFORMATION
  Report Type: 
  Country: None (occurrence: None)
  Receive Date: 20111214
  Receipt Date: 20111130
  Transmission Date: 20120403
  Serious: No
  Sender: FDA-Public Use
  Company Number: US-AMGEN-USASP2011063529

PATIENT
  Age: 62 Year
  Sex: Female

DRUGS (3)
  1. ENBREL [Suspect]
     Indication: RHEUMATOID ARTHRITIS
     Dosage: 50 MG, QWK
     Dates: start: 20040101, end: 20110901
  2. ORENCIA [Concomitant]
  3. ENBREL [Suspect]
     Indication: PSORIATIC ARTHROPATHY

REACTIONS (4)
  - RHEUMATOID ARTHRITIS [None]
  - LABORATORY TEST ABNORMAL [None]
  - INJECTION SITE HAEMATOMA [None]
  - PSORIATIC ARTHROPATHY [None]
